FAERS Safety Report 14630959 (Version 1)
Quarter: 2018Q1

REPORT INFORMATION
  Report Type: Spontaneous
  Country: DK (occurrence: DK)
  Receive Date: 20180313
  Receipt Date: 20180313
  Transmission Date: 20180509
  Serious: Yes (Disabling)
  Sender: FDA-Public Use
  Company Number: DK-ABBVIE-18S-044-2287074-00

PATIENT
  Age: 55 Year
  Sex: Male

DRUGS (15)
  1. HJERTEALBYL [Concomitant]
     Indication: THROMBOSIS PROPHYLAXIS
     Dosage: STYRKE: 75 MG.
     Route: 048
     Dates: start: 20160531
  2. LIPISTAD [Concomitant]
     Indication: HYPERCHOLESTEROLAEMIA
     Dosage: STYRKE: 40 MG.
     Route: 048
     Dates: start: 20170626
  3. COLECALCIFEROL [Concomitant]
     Active Substance: CHOLECALCIFEROL
     Indication: VITAMIN D DEFICIENCY
     Route: 065
  4. MOVICOL [Concomitant]
     Active Substance: POLYETHYLENE GLYCOL 3350\POTASSIUM CHLORIDE\SODIUM BICARBONATE\SODIUM CHLORIDE
     Indication: CONSTIPATION
     Route: 048
  5. MAREVAN [Concomitant]
     Active Substance: WARFARIN SODIUM
     Indication: ANTICOAGULANT THERAPY
     Dosage: STYRKE: 2,5 MG.
     Route: 048
     Dates: start: 20170908
  6. TRESIBA 100 FLEXTOUCH [Concomitant]
     Indication: DIABETES MELLITUS
     Dosage: STYRKE: 100 UML
     Route: 058
     Dates: start: 20160531
  7. CARVEDILOL TEVA [Concomitant]
     Active Substance: CARVEDILOL
     Indication: HYPERTENSION
     Dosage: STYRKE: 25 MG.
     Route: 048
     Dates: start: 20170919
  8. FURIX [Concomitant]
     Active Substance: FUROSEMIDE
     Indication: DIURETIC THERAPY
     Dosage: DOSIS: 2 TABL. MORGEN, 1 TABL. MIDDAG OG 1 TABL. AFTEN.?STYRKE: 250 MG.
     Route: 048
     Dates: start: 20170630
  9. NOVORAPID [Concomitant]
     Active Substance: INSULIN ASPART
     Indication: DIABETES MELLITUS
     Route: 065
  10. PANODIL [Concomitant]
     Active Substance: ACETAMINOPHEN
     Indication: PAIN
     Dosage: DOSIS: 2 TABLETTER EFTER BEHOV. H?JST 4 GANGE DAGLIGT?STYRKE: 500 MG.
     Route: 048
     Dates: start: 20180127
  11. ANCOZAN [Concomitant]
     Active Substance: LOSARTAN POTASSIUM
     Indication: HYPERTENSION
     Dosage: STYRKE: 100 MG.
     Route: 048
     Dates: start: 20170711
  12. EXVIERA [Suspect]
     Active Substance: DASABUVIR
     Indication: HEPATITIS C
     Dosage: DOSIS: 1 TABLET KL. 8 OG 1 TABLET KL. 17.?STYRKE: 250 MG.
     Route: 048
     Dates: start: 20180119, end: 20180119
  13. VIEKIRAX [Suspect]
     Active Substance: OMBITASVIR\PARITAPREVIR\RITONAVIR
     Indication: CHRONIC HEPATITIS C
     Dosage: STYRKE: 12,5 + 75 + 50 MG
     Route: 048
     Dates: start: 20180109, end: 20180119
  14. MODERIBA [Suspect]
     Active Substance: RIBAVIRIN
     Indication: CHRONIC HEPATITIS C
     Dosage: STYRKE: 200 MG.
     Route: 048
     Dates: start: 20180109, end: 20180119
  15. PRIMPERAN [Concomitant]
     Active Substance: METOCLOPRAMIDE HYDROCHLORIDE
     Indication: NAUSEA
     Route: 065

REACTIONS (2)
  - Vitrectomy [Recovered/Resolved]
  - Vitreous haemorrhage [Recovered/Resolved with Sequelae]

NARRATIVE: CASE EVENT DATE: 20180119
